FAERS Safety Report 4524122-X (Version None)
Quarter: 2004Q4

REPORT INFORMATION
  Report Type: 
  Country: None (occurrence: None)
  Receive Date: 20041209
  Receipt Date: 20041126
  Transmission Date: 20050328
  Serious: Yes (Life-Threatening)
  Sender: FDA-Public Use
  Company Number: 2004100059

PATIENT
  Age: 36 Year
  Sex: Male
  Weight: 89 kg

DRUGS (8)
  1. VIRACEPT [Suspect]
     Indication: HIV INFECTION
     Dosage: 2500 MG (2 IN 1 D), ORAL
     Route: 048
     Dates: start: 20020328, end: 20020812
  2. LAMIVUDINE (LAMIVUDINE) [Suspect]
     Indication: HIV INFECTION
     Dosage: 300 MG (2 IN 1 D), ORAL
     Route: 048
     Dates: start: 20020812, end: 20040727
  3. STAVUDINE (STAVUDINE) [Suspect]
     Indication: HIV INFECTION
     Dosage: ORAL
     Route: 048
     Dates: start: 20040812, end: 20040727
  4. EFAVIRENZ (EFAVIRENZ) [Suspect]
     Indication: HIV INFECTION
     Dosage: ORAL
     Route: 048
     Dates: start: 20020328, end: 20021202
  5. ZIDOVUDINE W/LAMIVUDINE (LAMIVUDINE, ZIDOVUDINE) [Suspect]
     Indication: HIV INFECTION
     Dosage: ORAL
     Route: 048
     Dates: start: 20040727, end: 20040831
  6. KALETRA [Suspect]
     Indication: HIV INFECTION
     Dosage: ORAL
     Route: 048
     Dates: start: 20020812
  7. TENOFOVIR DISOPROXIL FUMARATE (TENOFOVIR DISPOROXIL FUMARATE) [Concomitant]
  8. EMTRICITABINE (EMTRICITABINE) [Concomitant]

REACTIONS (5)
  - ACUTE MYELOID LEUKAEMIA [None]
  - BLOOD LACTATE DEHYDROGENASE INCREASED [None]
  - HAEMOGLOBIN DECREASED [None]
  - WHITE BLOOD CELL COUNT DECREASED [None]
  - WHITE BLOOD CELL COUNT INCREASED [None]
